FAERS Safety Report 16439892 (Version 1)
Quarter: 2019Q2

REPORT INFORMATION
  Report Type: Spontaneous
  Country: TR (occurrence: TR)
  Receive Date: 20190617
  Receipt Date: 20190617
  Transmission Date: 20190711
  Serious: Yes (Disabling, Other)
  Sender: FDA-Public Use
  Company Number: TR-ROCHE-2317976

PATIENT
  Age: 71 Year
  Sex: Female
  Weight: 59 kg

DRUGS (5)
  1. MYCAMINE [Concomitant]
     Active Substance: MICAFUNGIN SODIUM
     Indication: MUCOSAL INFLAMMATION
     Dosage: 1X1
     Route: 042
     Dates: start: 20190513, end: 20190523
  2. ETOPOSIDE. [Concomitant]
     Active Substance: ETOPOSIDE
  3. MERONEM [Concomitant]
     Active Substance: MEROPENEM
     Indication: MUCOSAL INFLAMMATION
     Dosage: 9X1
     Route: 042
     Dates: start: 20190513, end: 20190523
  4. CARBOPLATIN. [Concomitant]
     Active Substance: CARBOPLATIN
  5. TECENTRIQ [Suspect]
     Active Substance: ATEZOLIZUMAB
     Indication: SMALL CELL LUNG CANCER
     Dosage: LAST DOSE 07/MAY/2019
     Route: 041
     Dates: start: 20181113

REACTIONS (5)
  - Autoimmune hepatitis [Unknown]
  - Hepatic enzyme increased [Unknown]
  - Speech disorder [Unknown]
  - Dysphagia [Unknown]
  - Dry mouth [Unknown]

NARRATIVE: CASE EVENT DATE: 20190513
